FAERS Safety Report 8379568-9 (Version None)
Quarter: 2012Q2

REPORT INFORMATION
  Report Type: 
  Country: None (occurrence: None)
  Receive Date: 20120523
  Receipt Date: 20120509
  Transmission Date: 20120825
  Serious: No
  Sender: FDA-Public Use
  Company Number: KR-JNJFOC-20120412853

PATIENT
  Age: 3 Decade
  Sex: Female

DRUGS (8)
  1. INVEGA [Suspect]
     Route: 048
     Dates: start: 20100401
  2. LITHIUM CARBONATE [Concomitant]
     Route: 048
  3. INVEGA [Suspect]
     Indication: SCHIZOPHRENIA
     Route: 048
     Dates: start: 20100301
  4. RISPERDAL [Suspect]
     Indication: SCHIZOPHRENIA
     Route: 048
  5. INVEGA [Suspect]
     Route: 048
     Dates: start: 20120401
  6. RISPERDAL CONSTA [Suspect]
     Indication: SCHIZOPHRENIA
     Route: 030
     Dates: start: 20091101
  7. INVEGA [Suspect]
     Route: 048
     Dates: start: 20091201
  8. INVEGA [Suspect]
     Route: 048
     Dates: start: 20100201

REACTIONS (1)
  - GLYCOSURIA [None]
